FAERS Safety Report 4471592-1 (Version None)
Quarter: 2004Q4

REPORT INFORMATION
  Report Type: 
  Country: None (occurrence: None)
  Receive Date: 20041012
  Receipt Date: 20040930
  Transmission Date: 20050328
  Serious: Yes (Hospitalization)
  Sender: FDA-Public Use
  Company Number: JP-GLAXOSMITHKLINE-B0347165A

PATIENT
  Age: 37 Year
  Sex: Female

DRUGS (3)
  1. IMIGRAN [Suspect]
     Indication: MIGRAINE
     Dosage: 3MG PER DAY
     Route: 058
     Dates: start: 20040929, end: 20040929
  2. PONTAL [Concomitant]
     Route: 048
  3. CAFFEINE [Concomitant]
     Route: 048

REACTIONS (1)
  - MENINGITIS [None]
